FAERS Safety Report 4929359-3 (Version None)
Quarter: 2006Q1

REPORT INFORMATION
  Report Type: 
  Country: None (occurrence: None)
  Receive Date: 20060224
  Receipt Date: 20060221
  Transmission Date: 20060701
  Serious: Yes (Death)
  Sender: FDA-Public Use
  Company Number: 2006-138876-NL

PATIENT
  Age: 40 Year
  Sex: Female

DRUGS (9)
  1. MIRTAZAPINE [Suspect]
     Indication: DEPRESSION
     Dosage: 30 MG, OPHTHALMIC
     Route: 047
     Dates: start: 20050507
  2. VENLAFAXINE HCL [Suspect]
     Indication: DEPRESSION
     Dosage: 150 MG QD, ORAL
     Route: 048
  3. QUETIAPINE FUMARATE [Suspect]
     Indication: PSYCHOTIC DISORDER
     Dosage: 800 MG QD, ORAL
     Route: 048
     Dates: start: 20050511
  4. AMLODIPINE [Concomitant]
  5. LEVONORGESTREL AND ETHINYL ESTRADIOL [Concomitant]
  6. DIAZEPAM [Concomitant]
  7. ALBYL-E [Concomitant]
  8. ZOPICLONE [Concomitant]
  9. ALPRAZOLAM [Concomitant]

REACTIONS (9)
  - ACUTE MYOCARDIAL INFARCTION [None]
  - ANXIETY [None]
  - BLOOD PRESSURE INCREASED [None]
  - CONVULSION [None]
  - DRUG INEFFECTIVE [None]
  - LOSS OF CONSCIOUSNESS [None]
  - OVERWEIGHT [None]
  - PALLOR [None]
  - VENTRICULAR FIBRILLATION [None]
